FAERS Safety Report 9481374 (Version 2)
Quarter: 2013Q3

REPORT INFORMATION
  Report Type: Spontaneous
  Country: US (occurrence: US)
  Receive Date: 20130828
  Receipt Date: 20130828
  Transmission Date: 20140515
  Serious: Yes (Hospitalization, Other)
  Sender: FDA-Public Use
  Company Number: US-AMGEN-KDL158411

PATIENT
  Age: 52 Year
  Sex: Female

DRUGS (2)
  1. ENBREL [Suspect]
     Indication: RHEUMATOID ARTHRITIS
     Dosage: 50 MG, QWK
     Route: 058
     Dates: start: 20030108
  2. METHOTREXATE [Concomitant]
     Dosage: 25 MG, QWK

REACTIONS (6)
  - Pneumonia [Unknown]
  - Gastroenteritis viral [Unknown]
  - Herpes zoster [Unknown]
  - Nausea [Unknown]
  - Injection site pain [Unknown]
  - Weight increased [Unknown]
